FAERS Safety Report 8351360-0 (Version None)
Quarter: 2012Q2

REPORT INFORMATION
  Report Type: 
  Country: None (occurrence: None)
  Receive Date: 20120510
  Receipt Date: 20120508
  Transmission Date: 20120825
  Serious: Yes (Life-Threatening, Other)
  Sender: FDA-Public Use
  Company Number: US-ABBOTT-12P-163-0933384-00

PATIENT
  Sex: Male
  Weight: 72.64 kg

DRUGS (1)
  1. ANDROGEL [Suspect]
     Indication: BLOOD TESTOSTERONE DECREASED
     Dosage: 2 PUMPS DAILY
     Route: 061
     Dates: end: 20120501

REACTIONS (25)
  - DIZZINESS [None]
  - PRURITUS GENERALISED [None]
  - DRUG INEFFECTIVE [None]
  - EMOTIONAL DISTRESS [None]
  - BLOOD GLUCOSE DECREASED [None]
  - ANXIETY [None]
  - IMPATIENCE [None]
  - HOSTILITY [None]
  - ACTIVITIES OF DAILY LIVING IMPAIRED [None]
  - DYSGEUSIA [None]
  - ORAL DISCOMFORT [None]
  - DISTURBANCE IN ATTENTION [None]
  - DYSPHAGIA [None]
  - APATHY [None]
  - NERVOUSNESS [None]
  - SKIN DISORDER [None]
  - ASTHENIA [None]
  - PARAESTHESIA ORAL [None]
  - HEADACHE [None]
  - SYNCOPE [None]
  - FEELING ABNORMAL [None]
  - CONFUSIONAL STATE [None]
  - NAUSEA [None]
  - LOSS OF LIBIDO [None]
  - BURNING SENSATION [None]
